FAERS Safety Report 21184887 (Version 1)
Quarter: 2022Q3

REPORT INFORMATION
  Report Type: Spontaneous
  Country: CN (occurrence: CN)
  Receive Date: 20220808
  Receipt Date: 20220808
  Transmission Date: 20221027
  Serious: Yes (Hospitalization)
  Sender: FDA-Public Use
  Company Number: CN-ELI_LILLY_AND_COMPANY-CN202207012995

PATIENT
  Age: 58 Year
  Sex: Female
  Weight: 73 kg

DRUGS (2)
  1. DULAGLUTIDE [Suspect]
     Active Substance: DULAGLUTIDE
     Indication: Hyperglycaemia
     Dosage: 1.5 MG, WEEKLY (1/W)
     Route: 058
     Dates: start: 20220620
  2. DULAGLUTIDE [Suspect]
     Active Substance: DULAGLUTIDE
     Indication: Diabetes mellitus

REACTIONS (6)
  - Blood glucose increased [Recovering/Resolving]
  - Dizziness [Recovering/Resolving]
  - Discomfort [Unknown]
  - Vomiting [Recovering/Resolving]
  - Nausea [Recovering/Resolving]
  - Fatigue [Recovering/Resolving]

NARRATIVE: CASE EVENT DATE: 20220620
